FAERS Safety Report 10896682 (Version 1)
Quarter: 2015Q1

REPORT INFORMATION
  Report Type: Other
  Country: US (occurrence: US)
  Receive Date: 20150309
  Receipt Date: 20150309
  Transmission Date: 20150721
  Serious: Yes (Death, Hospitalization)
  Sender: FDA-Public Use
  Company Number: US-UNITED THERAPEUTICS-UNT-2015-000441

PATIENT
  Age: 62 Year
  Sex: Male
  Weight: 89.34 kg

DRUGS (4)
  1. TYVASO [Suspect]
     Active Substance: TREPROSTINIL
     Indication: PULMONARY HYPERTENSION
     Dosage: 18-90 MCG, QID
     Dates: start: 20141016
  2. TYVASO [Suspect]
     Active Substance: TREPROSTINIL
     Dosage: 18-90 MCG, QID
  3. ADCIRCA [Concomitant]
     Active Substance: TADALAFIL
     Indication: PRODUCT USED FOR UNKNOWN INDICATION
  4. LETAIRIS [Concomitant]
     Active Substance: AMBRISENTAN
     Indication: PRODUCT USED FOR UNKNOWN INDICATION

REACTIONS (3)
  - Death [Fatal]
  - Influenza [Unknown]
  - Pneumonia [Unknown]

NARRATIVE: CASE EVENT DATE: 20141229
